FAERS Safety Report 17257562 (Version 2)
Quarter: 2020Q1

REPORT INFORMATION
  Report Type: Spontaneous
  Country: DE (occurrence: DE)
  Receive Date: 20200110
  Receipt Date: 20200213
  Transmission Date: 20200409
  Serious: Yes (Hospitalization)
  Sender: FDA-Public Use
  Company Number: DE-MYLANLABS-2020M1002219

PATIENT
  Age: 13 Year
  Sex: Male
  Weight: 38 kg

DRUGS (5)
  1. METHOTREXATE. [Suspect]
     Active Substance: METHOTREXATE
     Indication: T-CELL TYPE ACUTE LEUKAEMIA
     Dosage: DAILY DOSE: 12 MG MILLGRAM(S) EVERY 6 WEEKS
     Route: 037
  2. METHOTREXATE (METHOTREXATE SODIUM) [Suspect]
     Active Substance: METHOTREXATE SODIUM
     Indication: T-CELL TYPE ACUTE LEUKAEMIA
     Dosage: 10 MILLIGRAM, QW, DAILY DOSE 10 MG MILLGRAM(S) EVERY WEEKS
     Route: 048
  3. MERCAPTOPURIN [Concomitant]
     Active Substance: MERCAPTOPURINE
     Indication: T-CELL TYPE ACUTE LEUKAEMIA
     Dosage: 30 MILLIGRAM, QOD, DAILY DOSE: 30 MG MILLGRAM(S) EVERY 2 DAYS
     Route: 048
  4. MERCAPTOPURIN [Concomitant]
     Active Substance: MERCAPTOPURINE
     Dosage: 20 MILLIGRAM, QOD, DAILY DOSE: 20 MG MILLGRAM(S) EVERY 2 DAYS
     Route: 048
  5. COTRIMOXAZOL [Suspect]
     Active Substance: SULFAMETHOXAZOLE\TRIMETHOPRIM
     Indication: PRODUCT USED FOR UNKNOWN INDICATION
     Dosage: 120-0-80 MG
     Route: 048

REACTIONS (3)
  - General physical health deterioration [Not Recovered/Not Resolved]
  - Erythema [Not Recovered/Not Resolved]
  - Photosensitivity reaction [Not Recovered/Not Resolved]

NARRATIVE: CASE EVENT DATE: 20190727
